FAERS Safety Report 8264624-6 (Version None)
Quarter: 2012Q2

REPORT INFORMATION
  Report Type: 
  Country: None (occurrence: None)
  Receive Date: 20120403
  Receipt Date: 20120321
  Transmission Date: 20120825
  Serious: Yes (Death, Hospitalization, Other)
  Sender: FDA-Public Use
  Company Number: 2012P1007395

PATIENT
  Age: 82 Year
  Sex: Male
  Weight: 74.1631 kg

DRUGS (14)
  1. PHOSPHORUS BINDER [Concomitant]
  2. IRON [Concomitant]
  3. ALBUTEROL [Concomitant]
  4. OMEPRAZOLE [Concomitant]
  5. DIGOXIN [Suspect]
     Indication: CONGESTIVE CARDIOMYOPATHY
     Dosage: 0.215 MG;3X/WK;, 0.107 MG;3X/WK;
     Dates: start: 20120127, end: 20120205
  6. DIGOXIN [Suspect]
     Indication: CONGESTIVE CARDIOMYOPATHY
     Dosage: 0.215 MG;3X/WK;, 0.107 MG;3X/WK;
     Dates: start: 20110801, end: 20120127
  7. SYNTHROID [Concomitant]
  8. IBUPROFEN [Concomitant]
  9. CARVEDILOL [Concomitant]
  10. COUMADIN [Concomitant]
  11. LOSARTAN POTASSIUM [Concomitant]
  12. ISOSORBIDE DINITRATE [Concomitant]
  13. FORMOTEROL FUMARATE [Concomitant]
  14. SLO IRON [Concomitant]

REACTIONS (15)
  - DECREASED APPETITE [None]
  - WEIGHT DECREASED [None]
  - RENAL FAILURE CHRONIC [None]
  - CARDIOACTIVE DRUG LEVEL ABOVE THERAPEUTIC [None]
  - CARDIO-RESPIRATORY ARREST [None]
  - HYPOPHAGIA [None]
  - HYPOTENSION [None]
  - FAILURE TO THRIVE [None]
  - NAUSEA [None]
  - VOMITING [None]
  - ASTHENIA [None]
  - MALNUTRITION [None]
  - TOXICITY TO VARIOUS AGENTS [None]
  - CARDIAC DISORDER [None]
  - REFUSAL OF TREATMENT BY PATIENT [None]
